FAERS Safety Report 6994570-7 (Version None)
Quarter: 2010Q3

REPORT INFORMATION
  Report Type: 
  Country: None (occurrence: None)
  Receive Date: 20100916
  Receipt Date: 20100916
  Transmission Date: 20110219
  Serious: Yes (Life-Threatening, Hospitalization)
  Sender: FDA-Public Use
  Company Number: None

PATIENT
  Age: 51 Year
  Sex: Male
  Weight: 211.5 kg

DRUGS (4)
  1. GENTAMICIN [Suspect]
     Indication: SEPSIS
     Dosage: 120 MG Q12HR IV
     Route: 042
     Dates: start: 20100909, end: 20100911
  2. GENTAMICIN [Suspect]
     Indication: WOUND
     Dosage: 120 MG Q12HR IV
     Route: 042
     Dates: start: 20100909, end: 20100911
  3. VANCOMYCIN [Suspect]
     Indication: SEPSIS
     Dosage: 1000 MG Q12HR IV
     Route: 042
     Dates: start: 20100909, end: 20100911
  4. VANCOMYCIN [Suspect]
     Indication: WOUND
     Dosage: 1000 MG Q12HR IV
     Route: 042
     Dates: start: 20100909, end: 20100911

REACTIONS (2)
  - DIALYSIS [None]
  - RENAL FAILURE [None]
